FAERS Safety Report 6637419-4 (Version None)
Quarter: 2010Q1

REPORT INFORMATION
  Report Type: 
  Country: None (occurrence: None)
  Receive Date: 20100311
  Receipt Date: 20100302
  Transmission Date: 20100710
  Serious: Yes (Other)
  Sender: FDA-Public Use
  Company Number: 2009JP004256

PATIENT
  Sex: Female
  Weight: 53 kg

DRUGS (4)
  1. PROGRAF [Suspect]
     Indication: MYASTHENIA GRAVIS
     Dosage: 0.5 MG, UID/QD ; 0.25 MG, UID/QD
  2. PREDNISOLONE [Concomitant]
  3. MYTELASE [Concomitant]
  4. MESTINON [Concomitant]

REACTIONS (1)
  - APLASIA PURE RED CELL [None]
